FAERS Safety Report 13513352 (Version 2)
Quarter: 2024Q4

REPORT INFORMATION
  Report Type: Spontaneous
  Country: JP (occurrence: JP)
  Receive Date: 20170504
  Receipt Date: 20241118
  Transmission Date: 20250115
  Serious: Yes (Hospitalization, Other)
  Sender: ALKEM
  Company Number: None

PATIENT
  Age: 47 Year
  Sex: Male

DRUGS (5)
  1. MYCOPHENOLATE MOFETIL [Suspect]
     Active Substance: MYCOPHENOLATE MOFETIL
     Indication: Immunosuppression
     Dosage: 1000 MILLIGRAM, QD
     Route: 065
  2. MYCOPHENOLATE MOFETIL [Suspect]
     Active Substance: MYCOPHENOLATE MOFETIL
     Dosage: 2000 MILLIGRAM, QD
     Route: 065
  3. TACROLIMUS [Suspect]
     Active Substance: TACROLIMUS
     Indication: Immunosuppression
     Dosage: 4 MILLIGRAM, QD
     Route: 065
  4. PREDNISOLONE [Suspect]
     Active Substance: PREDNISOLONE
     Indication: Immunosuppression
     Dosage: 5 MILLIGRAM, QD
     Route: 065
  5. PREDNISOLONE [Suspect]
     Active Substance: PREDNISOLONE
     Dosage: UNK (MINI PULSE)
     Route: 048

REACTIONS (4)
  - Post transplant lymphoproliferative disorder [Recovered/Resolved]
  - Small intestinal haemorrhage [Recovered/Resolved]
  - Epstein-Barr virus infection reactivation [Recovered/Resolved]
  - Pneumonia [Unknown]
